APPROVED DRUG PRODUCT: LYSODREN
Active Ingredient: MITOTANE
Strength: 500MG
Dosage Form/Route: TABLET;ORAL
Application: N016885 | Product #001
Applicant: ESTEVE PHARMACEUTICALS SA
Approved: Approved Prior to Jan 1, 1982 | RLD: Yes | RS: Yes | Type: RX